FAERS Safety Report 14505029 (Version 3)
Quarter: 2018Q1

REPORT INFORMATION
  Report Type: Spontaneous
  Country: JP (occurrence: JP)
  Receive Date: 20180208
  Receipt Date: 20180328
  Transmission Date: 20180509
  Serious: Yes (Hospitalization, Other)
  Sender: FDA-Public Use
  Company Number: JP-ELI_LILLY_AND_COMPANY-JP201801014461AA

PATIENT
  Age: 85 Year
  Sex: Female
  Weight: 51 kg

DRUGS (6)
  1. FORTEO [Suspect]
     Active Substance: TERIPARATIDE
     Indication: OSTEOPOROSIS
     Dosage: UNK UNK, DAILY
     Route: 058
     Dates: start: 20171208, end: 20180205
  2. TAKECAB [Concomitant]
     Active Substance: VONOPRAZAN FUMURATE
     Dosage: 10 MG, DAILY
     Route: 048
  3. CELECOX [Concomitant]
     Active Substance: CELECOXIB
     Dosage: 400 MG, BID
     Route: 048
  4. BAYASPIRIN [Concomitant]
     Active Substance: ASPIRIN
     Dosage: 100 MG, DAILY
     Route: 048
  5. PREMINENT [Concomitant]
     Active Substance: HYDROCHLOROTHIAZIDE\LOSARTAN POTASSIUM
     Dosage: 1 DF, DAILY
     Route: 048
  6. FUROSEMIDE. [Concomitant]
     Active Substance: FUROSEMIDE
     Dosage: 10 MG, DAILY
     Route: 048

REACTIONS (2)
  - Pneumocystis jirovecii pneumonia [Unknown]
  - Lung disorder [Recovering/Resolving]

NARRATIVE: CASE EVENT DATE: 201712
